FAERS Safety Report 10204522 (Version 1)
Quarter: 2014Q2

REPORT INFORMATION
  Report Type: Report from Study
  Country: US (occurrence: US)
  Receive Date: 20140529
  Receipt Date: 20140529
  Transmission Date: 20141212
  Serious: Yes (Hospitalization)
  Sender: FDA-Public Use
  Company Number: US-ABBVIE-14P-163-1239513-00

PATIENT
  Sex: Female
  Weight: 67.19 kg

DRUGS (3)
  1. HUMIRA [Suspect]
     Indication: CROHN^S DISEASE
     Route: 058
     Dates: end: 20131119
  2. HUMIRA [Suspect]
     Route: 058
     Dates: start: 201405
  3. MULTIVITAMIN [Concomitant]
     Indication: ROUTINE HEALTH MAINTENANCE

REACTIONS (3)
  - Large intestinal stenosis [Recovered/Resolved]
  - Gastrointestinal disorder [Recovered/Resolved]
  - Crohn^s disease [Recovering/Resolving]
